FAERS Safety Report 13818560 (Version 1)
Quarter: 2017Q3

REPORT INFORMATION
  Report Type: Spontaneous
  Country: US (occurrence: US)
  Receive Date: 20170731
  Receipt Date: 20170731
  Transmission Date: 20171127
  Serious: No
  Sender: FDA-Public Use
  Company Number: US-NEUROCRINE BIOSCIENCES INC.-2017NBI00324

PATIENT
  Age: 53 Year
  Sex: Female

DRUGS (10)
  1. LISINOPRIL. [Concomitant]
     Active Substance: LISINOPRIL
  2. LATUDA [Concomitant]
     Active Substance: LURASIDONE HYDROCHLORIDE
  3. COGENTIN [Suspect]
     Active Substance: BENZTROPINE MESYLATE
     Indication: PRODUCT USED FOR UNKNOWN INDICATION
     Dates: end: 20170612
  4. COGENTIN [Suspect]
     Active Substance: BENZTROPINE MESYLATE
     Dates: start: 20170613, end: 201706
  5. INGREZZA [Suspect]
     Active Substance: VALBENAZINE
     Indication: TEMPOROMANDIBULAR JOINT SYNDROME
     Dates: start: 20170602, end: 20170613
  6. INGREZZA [Suspect]
     Active Substance: VALBENAZINE
     Dates: start: 201706
  7. COGENTIN [Suspect]
     Active Substance: BENZTROPINE MESYLATE
     Dates: start: 201706
  8. LEXAPRO [Concomitant]
     Active Substance: ESCITALOPRAM OXALATE
  9. COGENTIN [Suspect]
     Active Substance: BENZTROPINE MESYLATE
     Dates: start: 201706, end: 201706
  10. INGREZZA [Suspect]
     Active Substance: VALBENAZINE
     Dates: start: 20170614, end: 201706

REACTIONS (3)
  - Eye disorder [Unknown]
  - Muscle twitching [Unknown]
  - Trismus [Unknown]

NARRATIVE: CASE EVENT DATE: 201706
